FAERS Safety Report 23367471 (Version 1)
Quarter: 2024Q1

REPORT INFORMATION
  Report Type: Spontaneous
  Country: FR (occurrence: FR)
  Receive Date: 20240104
  Receipt Date: 20240104
  Transmission Date: 20240409
  Serious: Yes (Other)
  Sender: FDA-Public Use
  Company Number: FR-009507513-2312FRA009824

PATIENT
  Age: 81 Year

DRUGS (1)
  1. PEMBROLIZUMAB [Suspect]
     Active Substance: PEMBROLIZUMAB
     Indication: Uveal melanoma
     Dosage: UNK UNK, Q3W

REACTIONS (4)
  - Tumour pseudoprogression [Recovered/Resolved]
  - Tumour pseudoprogression [Recovered/Resolved]
  - Tumour pseudoprogression [Not Recovered/Not Resolved]
  - Product use issue [Unknown]

NARRATIVE: CASE EVENT DATE: 20210601
